FAERS Safety Report 18118053 (Version 2)
Quarter: 2020Q3

REPORT INFORMATION
  Report Type: Spontaneous
  Country: NL (occurrence: NL)
  Receive Date: 20200806
  Receipt Date: 20200812
  Transmission Date: 20201103
  Serious: Yes (Other)
  Sender: FDA-Public Use
  Company Number: NL-MYLANLABS-2020M1069992

PATIENT
  Age: 22 Year
  Sex: Female
  Weight: 57 kg

DRUGS (2)
  1. AMITRIPTYLINE [Suspect]
     Active Substance: AMITRIPTYLINE
     Indication: CENTRAL PAIN SYNDROME
     Dosage: 1 DOSAGE FORM (1X)
     Dates: start: 20200202, end: 20200409
  2. AMITRIPTYLINE [Suspect]
     Active Substance: AMITRIPTYLINE
     Indication: ABDOMINAL PAIN UPPER

REACTIONS (3)
  - Nervousness [Not Recovered/Not Resolved]
  - Tachycardia [Not Recovered/Not Resolved]
  - Arrhythmia [Recovering/Resolving]

NARRATIVE: CASE EVENT DATE: 20200330
